FAERS Safety Report 10900232 (Version 2)
Quarter: 2015Q2

REPORT INFORMATION
  Report Type: Spontaneous
  Country: DE (occurrence: DE)
  Receive Date: 20150310
  Receipt Date: 20150429
  Transmission Date: 20150821
  Serious: Yes (Hospitalization, Other)
  Sender: FDA-Public Use
  Company Number: DE-PAR PHARMACEUTICAL, INC-2015SCPR010418

PATIENT

DRUGS (2)
  1. PHENPROCOUMON [Concomitant]
     Active Substance: PHENPROCOUMON
     Indication: COAGULOPATHY
     Dosage: UNK UNK, UNKNOWN
     Route: 048
  2. METRONIDAZOLE. [Suspect]
     Active Substance: METRONIDAZOLE
     Indication: CLOSTRIDIUM DIFFICILE COLITIS
     Dosage: 400 MG, TID
     Route: 048

REACTIONS (4)
  - Aphasia [Recovered/Resolved]
  - Cerebral ischaemia [Recovered/Resolved]
  - Hypertensive crisis [Recovered/Resolved]
  - Toxic encephalopathy [Recovered/Resolved]
